FAERS Safety Report 13444240 (Version 1)
Quarter: 2017Q2

REPORT INFORMATION
  Report Type: Spontaneous
  Country: FR (occurrence: FR)
  Receive Date: 20170414
  Receipt Date: 20170414
  Transmission Date: 20170830
  Serious: Yes (Death, Hospitalization)
  Sender: FDA-Public Use
  Company Number: FR-SA-2017SA065969

PATIENT
  Age: 73 Year
  Sex: Female

DRUGS (4)
  1. TAXOTERE [Suspect]
     Active Substance: DOCETAXEL
     Dosage: FREQUENCY: SINGLE INTAKE
     Route: 042
     Dates: start: 199901, end: 199903
  2. ENDOXAN [Suspect]
     Active Substance: CYCLOPHOSPHAMIDE
     Dosage: FORM: POWDER AND SOLUTION FOR INJECTION PREPARATION?DURATION: 8 MONTHS?FREQUENCY: SINGLE INTAKE
     Route: 042
     Dates: start: 19980105, end: 19990318
  3. FARMORUBICINE [Suspect]
     Active Substance: EPIRUBICIN HYDROCHLORIDE
     Dosage: DURATION: 73 DAYS?FREQUENCY: SINGLE INTAKE
     Route: 042
     Dates: start: 19990105, end: 19990318
  4. TAXOTERE [Suspect]
     Active Substance: DOCETAXEL
     Dosage: FREQUENCY: SINGLE INTAKE
     Route: 042
     Dates: start: 19980402, end: 19981217

REACTIONS (1)
  - Interstitial lung disease [Fatal]
